FAERS Safety Report 5162265-0 (Version None)
Quarter: 2006Q4

REPORT INFORMATION
  Report Type: 
  Country: None (occurrence: None)
  Receive Date: 20061121
  Receipt Date: 20061102
  Transmission Date: 20070319
  Serious: Yes (Death)
  Sender: FDA-Public Use
  Company Number: 061108-0001004

PATIENT
  Age: 23 Year
  Sex: 0

DRUGS (3)
  1. NEOPROFEN [Suspect]
     Indication: DRUG ABUSER
  2. BUPROPION HCL [Suspect]
     Indication: DRUG ABUSER
  3. COCAINE (COCAINE) [Suspect]
     Indication: DRUG ABUSER

REACTIONS (1)
  - DRUG ABUSER [None]
